FAERS Safety Report 8312190-9 (Version None)
Quarter: 2012Q2

REPORT INFORMATION
  Report Type: 
  Country: None (occurrence: None)
  Receive Date: 20120425
  Receipt Date: 20120416
  Transmission Date: 20120825
  Serious: Yes (Other)
  Sender: FDA-Public Use
  Company Number: US-ELI_LILLY_AND_COMPANY-US201204005540

PATIENT
  Sex: Male

DRUGS (13)
  1. LOVAZA [Concomitant]
     Dosage: UNK, QD
  2. SIMVASTATIN [Concomitant]
     Dosage: UNK, QD
  3. CALCIUM CITRATE [Concomitant]
     Dosage: UNK, QD
  4. LISINOPRIL [Concomitant]
     Dosage: UNK, QD
  5. NIACIN [Concomitant]
     Dosage: UNK, QD
  6. AVODART [Concomitant]
     Dosage: UNK, QD
  7. FLUTAMIDE [Concomitant]
     Dosage: UNK, QD
  8. CINNAMIN 200 [Concomitant]
     Dosage: UNK, QD
  9. ONGLYZA [Concomitant]
     Dosage: UNK, UNKNOWN
     Route: 065
  10. MULTI-VITAMIN [Concomitant]
     Dosage: UNK, QD
  11. IRON [Concomitant]
     Dosage: UNK, QD
  12. GLUCOPHAGE [Concomitant]
     Dosage: UNK, QD
  13. FORTEO [Suspect]
     Indication: OSTEOPOROSIS
     Dosage: 20 UG, QD
     Dates: start: 20110101

REACTIONS (1)
  - METASTASES TO PROSTATE [None]
